FAERS Safety Report 9634474 (Version 2)
Quarter: 2013Q4

REPORT INFORMATION
  Report Type: Spontaneous
  Country: DE (occurrence: None)
  Receive Date: 20131017
  Receipt Date: 20131129
  Transmission Date: 20140711
  Serious: Yes (Hospitalization, Other)
  Sender: FDA-Public Use
  Company Number: DEP_01238_2013

PATIENT
  Age: 60 Year
  Sex: Male

DRUGS (15)
  1. INSTANYL [Suspect]
     Indication: PAIN
     Dosage: 200 UG NASAL,PRN
  2. FENTANYL (FENTANYL) [Suspect]
     Indication: PAIN
     Dosage: TRANSDERMAL SYSTEM REGIMEN #1 DOES INCREASED FROM 25 MCG/H TO 275 MCG/H WITHIN 4MONTHS TRANSDERMAL)
  3. SPIRONOLACTONE [Concomitant]
  4. PANCREATIN [Concomitant]
  5. OMEPRAZOLE [Concomitant]
  6. TIOTROPIUM BROMIDE [Concomitant]
  7. SALBUTAMOL [Concomitant]
  8. BECLOMETASONE DIPROPIONATE W/FORMOTEROL FUMAR [Concomitant]
  9. THEOPHYLLINE [Concomitant]
  10. GABAPENTINE [Concomitant]
  11. PREGABALIN [Concomitant]
  12. MIRTAZAPINE [Concomitant]
  13. CITALOPRAM [Concomitant]
  14. BACLOFEN [Concomitant]
  15. ALIZAPRIDE [Concomitant]

REACTIONS (19)
  - Drug abuse [None]
  - Hyperhidrosis [None]
  - Constipation [None]
  - Diarrhoea [None]
  - Sleep disorder [None]
  - Hyperaesthesia [None]
  - Cognitive disorder [None]
  - Aggression [None]
  - Affect lability [None]
  - Mood altered [None]
  - Dry mouth [None]
  - Restlessness [None]
  - Sleep disorder [None]
  - Somnolence [None]
  - Feeling drunk [None]
  - Fatigue [None]
  - Pruritus [None]
  - Urticaria [None]
  - Dry mouth [None]
